FAERS Safety Report 7890236-X (Version None)
Quarter: 2011Q4

REPORT INFORMATION
  Report Type: 
  Country: None (occurrence: None)
  Receive Date: 20111103
  Receipt Date: 20110802
  Transmission Date: 20120403
  Serious: No
  Sender: FDA-Public Use
  Company Number: US-AMGEN-USASP2011013196

PATIENT
  Age: 58 Year
  Sex: Female

DRUGS (2)
  1. TREXALL [Concomitant]
  2. ENBREL [Suspect]
     Indication: RHEUMATOID ARTHRITIS
     Dosage: 50 MG, QWK
     Dates: start: 19981201, end: 20110214

REACTIONS (12)
  - RHEUMATOID ARTHRITIS [None]
  - NODULE [None]
  - INJECTION SITE PAIN [None]
  - INCISION SITE COMPLICATION [None]
  - IMPAIRED HEALING [None]
  - MUSCLE INJURY [None]
  - BONE GRAFT [None]
  - DENTAL CARE [None]
  - BUNION [None]
  - DENTAL IMPLANTATION [None]
  - TOOTH EXTRACTION [None]
  - THERAPEUTIC RESPONSE DECREASED [None]
